FAERS Safety Report 25916149 (Version 1)
Quarter: 2025Q4

REPORT INFORMATION
  Report Type: Spontaneous
  Country: CN (occurrence: CN)
  Receive Date: 20251014
  Receipt Date: 20251014
  Transmission Date: 20260117
  Serious: Yes (Hospitalization)
  Sender: ACCORD
  Company Number: None

PATIENT
  Age: 46 Year
  Sex: Male

DRUGS (3)
  1. GEMCITABINE HYDROCHLORIDE [Suspect]
     Active Substance: GEMCITABINE HYDROCHLORIDE
     Indication: Pancreatic carcinoma
     Dosage: 1.4 GRAM, WEEKLY
     Route: 042
     Dates: start: 20250715, end: 20250715
  2. SERPLULIMAB [Suspect]
     Active Substance: SERPLULIMAB
     Indication: Pancreatic carcinoma
     Dosage: 200 MILLIGRAM, QD, STRENGTH: 10 MG PER MILLILITER
     Route: 042
     Dates: start: 20250716, end: 20250716
  3. PACLITAXEL [Suspect]
     Active Substance: PACLITAXEL
     Indication: Pancreatic carcinoma
     Dosage: 200 MILLIGRAM, WEEKLY, IV DRIP
     Route: 042
     Dates: start: 20250715, end: 20250715

REACTIONS (2)
  - Product use in unapproved indication [Recovering/Resolving]
  - Granulocyte count decreased [Recovering/Resolving]

NARRATIVE: CASE EVENT DATE: 20250721
